FAERS Safety Report 8518016-2 (Version None)
Quarter: 2012Q3

REPORT INFORMATION
  Report Type: 
  Country: None (occurrence: None)
  Receive Date: 20120718
  Receipt Date: 20110803
  Transmission Date: 20120928
  Serious: No
  Sender: FDA-Public Use
  Company Number: US-BRISTOL-MYERS SQUIBB COMPANY-15945439

PATIENT
  Age: 70 Year
  Sex: Male

DRUGS (3)
  1. COUMADIN [Suspect]
     Dosage: INITIAL DOSE (UNKNOWN;JUN2011) INCREASED TO 10MG(JUN2011) 7.5MG DAILY (14JUL2011)
     Dates: start: 20110601
  2. ENOXAPARIN [Suspect]
     Indication: DEEP VEIN THROMBOSIS
     Dosage: ENOXAPARIN 80MG 13JUN2011 80MG ONCE A DAY 30JUN2011 80MG(TWICE DAILY) FOR 2DAYS
     Dates: start: 20110607
  3. ENOXAPARIN [Suspect]
     Indication: PULMONARY EMBOLISM
     Dosage: ENOXAPARIN 80MG 13JUN2011 80MG ONCE A DAY 30JUN2011 80MG(TWICE DAILY) FOR 2DAYS
     Dates: start: 20110607

REACTIONS (1)
  - INTERNATIONAL NORMALISED RATIO DECREASED [None]
